FAERS Safety Report 9234533 (Version 1)
Quarter: 2013Q2

REPORT INFORMATION
  Report Type: Spontaneous
  Country: US (occurrence: US)
  Receive Date: 20130416
  Receipt Date: 20130416
  Transmission Date: 20140414
  Serious: No
  Sender: FDA-Public Use
  Company Number: US-B.I. PHARMACEUTICALS,INC./RIDGEFIELD-2013-BI-09229BP

PATIENT
  Sex: Male

DRUGS (3)
  1. SPIRIVA [Suspect]
     Indication: EMPHYSEMA
     Dosage: 18 MCG
     Route: 055
     Dates: start: 2010
  2. ALBUTEROL INHALER [Concomitant]
     Indication: EMPHYSEMA
     Route: 055
  3. ADVAIR [Concomitant]
     Indication: EMPHYSEMA

REACTIONS (1)
  - Drug ineffective [Not Recovered/Not Resolved]
